FAERS Safety Report 18656395 (Version 1)
Quarter: 2020Q4

REPORT INFORMATION
  Report Type: Spontaneous
  Country: CA (occurrence: CA)
  Receive Date: 20201223
  Receipt Date: 20201223
  Transmission Date: 20210114
  Serious: Yes (Other)
  Sender: FDA-Public Use
  Company Number: CA-BAYER-2020-279637

PATIENT
  Age: 21 Year
  Sex: Male

DRUGS (1)
  1. KYLEENA [Suspect]
     Active Substance: LEVONORGESTREL
     Dosage: 17,5 ?G PER DAY CONTINUOUSLY
     Route: 015
     Dates: start: 20201116

REACTIONS (2)
  - Penile pain [Recovered/Resolved]
  - Penile haemorrhage [Recovered/Resolved]

NARRATIVE: CASE EVENT DATE: 20201214
